FAERS Safety Report 7921377 (Version 3)
Quarter: 2013Q2

REPORT INFORMATION
  Report Type: Spontaneous
  Country: US (occurrence: US)
  Receive Date: 20110429
  Receipt Date: 20130515
  Transmission Date: 20140414
  Serious: Yes (Other)
  Sender: FDA-Public Use
  Company Number: US-ASTRAZENECA-2010SE34303

PATIENT
  Age: 50 Year
  Sex: Female

DRUGS (4)
  1. NEXIUM [Suspect]
     Route: 048
  2. PRILOSEC DELAYED RELEASE CAPSULE [Suspect]
     Route: 048
  3. PREVACID [Suspect]
     Route: 065
  4. ZANTAC [Suspect]
     Route: 065

REACTIONS (10)
  - Chest discomfort [Unknown]
  - Blood pressure increased [Unknown]
  - Road traffic accident [Unknown]
  - Back injury [Unknown]
  - Abdominal pain [Unknown]
  - Malaise [Unknown]
  - Sinus disorder [Unknown]
  - Asthma [Unknown]
  - Drug ineffective [Unknown]
  - Intentional drug misuse [Unknown]
